FAERS Safety Report 17575202 (Version 2)
Quarter: 2020Q1

REPORT INFORMATION
  Report Type: Spontaneous
  Country: CA (occurrence: CA)
  Receive Date: 20200324
  Receipt Date: 20200326
  Transmission Date: 20200409
  Serious: Yes (Life-Threatening, Hospitalization)
  Sender: FDA-Public Use
  Company Number: CA-TEVA-2020-CA-1212243

PATIENT
  Age: 47 Year
  Sex: Male
  Weight: 64 kg

DRUGS (3)
  1. SEPTRA [Suspect]
     Active Substance: SULFAMETHOXAZOLE\TRIMETHOPRIM
     Indication: PNEUMONIA
     Route: 042
  2. PREDNISONE. [Concomitant]
     Active Substance: PREDNISONE
  3. TRIMETHOPRIMSULFAMETHOXAZOLE DS [Suspect]
     Active Substance: SULFAMETHOXAZOLE\TRIMETHOPRIM
     Indication: PNEUMONIA
     Dosage: 6 DOSAGE FORMS DAILY;
     Route: 048

REACTIONS (8)
  - Haemorrhage [Recovering/Resolving]
  - Gastrointestinal haemorrhage [Recovering/Resolving]
  - Epistaxis [Recovering/Resolving]
  - Thrombocytopenic purpura [Recovering/Resolving]
  - Tongue blistering [Recovering/Resolving]
  - Petechiae [Recovering/Resolving]
  - Blood blister [Recovering/Resolving]
  - Haematuria [Recovering/Resolving]
